FAERS Safety Report 22040016 (Version 2)
Quarter: 2023Q1

REPORT INFORMATION
  Report Type: Other
  Country: PT (occurrence: PT)
  Receive Date: 20230227
  Receipt Date: 20230306
  Transmission Date: 20230418
  Serious: Yes (Other)
  Sender: FDA-Public Use
  Company Number: PT-CELLTRION INC.-2022PT012846

PATIENT

DRUGS (2)
  1. TRASTUZUMAB [Suspect]
     Active Substance: TRASTUZUMAB
     Indication: Breast cancer
     Dosage: UNK
     Route: 042
     Dates: start: 20220523
  2. PACLITAXEL [Suspect]
     Active Substance: PACLITAXEL
     Indication: Breast cancer
     Dosage: UNK
     Dates: start: 20220523

REACTIONS (4)
  - Mucosal inflammation [Unknown]
  - Polyneuropathy [Unknown]
  - Asthenia [Unknown]
  - Anaemia [Unknown]

NARRATIVE: CASE EVENT DATE: 20220523
